FAERS Safety Report 13120039 (Version 7)
Quarter: 2022Q4

REPORT INFORMATION
  Report Type: Spontaneous
  Country: US (occurrence: None)
  Receive Date: 20170117
  Receipt Date: 20221025
  Transmission Date: 20230113
  Serious: Yes (Other)
  Sender: FDA-Public Use
  Company Number: 2017SE02375

PATIENT
  Age: 57 Year
  Sex: Female
  Weight: 42.2 kg

DRUGS (61)
  1. NEXIUM [Suspect]
     Active Substance: ESOMEPRAZOLE MAGNESIUM
     Indication: Gastrooesophageal reflux disease
     Route: 048
     Dates: start: 2001, end: 2012
  2. NEXIUM [Suspect]
     Active Substance: ESOMEPRAZOLE MAGNESIUM
     Indication: Peptic ulcer
     Route: 048
     Dates: start: 2001, end: 2012
  3. NEXIUM [Suspect]
     Active Substance: ESOMEPRAZOLE MAGNESIUM
     Indication: Prophylaxis against gastrointestinal ulcer
     Route: 048
     Dates: start: 2001, end: 2012
  4. NEXIUM [Suspect]
     Active Substance: ESOMEPRAZOLE MAGNESIUM
     Indication: Gastrooesophageal reflux disease
     Route: 048
     Dates: start: 2006, end: 2013
  5. NEXIUM [Suspect]
     Active Substance: ESOMEPRAZOLE MAGNESIUM
     Indication: Peptic ulcer
     Route: 048
     Dates: start: 2006, end: 2013
  6. NEXIUM [Suspect]
     Active Substance: ESOMEPRAZOLE MAGNESIUM
     Indication: Prophylaxis against gastrointestinal ulcer
     Route: 048
     Dates: start: 2006, end: 2013
  7. NEXIUM [Suspect]
     Active Substance: ESOMEPRAZOLE MAGNESIUM
     Indication: Gastrooesophageal reflux disease
     Dosage: 40.0MG UNKNOWN
     Route: 048
     Dates: start: 20060301
  8. NEXIUM [Suspect]
     Active Substance: ESOMEPRAZOLE MAGNESIUM
     Indication: Peptic ulcer
     Dosage: 40.0MG UNKNOWN
     Route: 048
     Dates: start: 20060301
  9. NEXIUM [Suspect]
     Active Substance: ESOMEPRAZOLE MAGNESIUM
     Indication: Prophylaxis against gastrointestinal ulcer
     Dosage: 40.0MG UNKNOWN
     Route: 048
     Dates: start: 20060301
  10. PRILOSEC [Suspect]
     Active Substance: OMEPRAZOLE MAGNESIUM
     Indication: Dyspepsia
     Route: 048
     Dates: start: 1999, end: 2001
  11. PRILOSEC [Suspect]
     Active Substance: OMEPRAZOLE MAGNESIUM
     Indication: Gastrooesophageal reflux disease
     Route: 048
     Dates: start: 1999, end: 2001
  12. PRILOSEC OTC [Suspect]
     Active Substance: OMEPRAZOLE MAGNESIUM
     Route: 048
  13. DEXILANT [Suspect]
     Active Substance: DEXLANSOPRAZOLE
     Indication: Gastrooesophageal reflux disease
     Route: 065
     Dates: start: 2006
  14. DEXILANT [Suspect]
     Active Substance: DEXLANSOPRAZOLE
     Indication: Peptic ulcer
     Route: 065
     Dates: start: 2006
  15. DEXILANT [Suspect]
     Active Substance: DEXLANSOPRAZOLE
     Indication: Prophylaxis against gastrointestinal ulcer
     Route: 065
     Dates: start: 2006
  16. DEXILANT [Suspect]
     Active Substance: DEXLANSOPRAZOLE
     Indication: Gastrooesophageal reflux disease
     Route: 065
     Dates: start: 2012
  17. DEXILANT [Suspect]
     Active Substance: DEXLANSOPRAZOLE
     Indication: Peptic ulcer
     Route: 065
     Dates: start: 2012
  18. DEXILANT [Suspect]
     Active Substance: DEXLANSOPRAZOLE
     Indication: Prophylaxis against gastrointestinal ulcer
     Route: 065
     Dates: start: 2012
  19. DEXILANT [Suspect]
     Active Substance: DEXLANSOPRAZOLE
     Indication: Gastrooesophageal reflux disease
     Route: 065
     Dates: start: 2013, end: 2016
  20. DEXILANT [Suspect]
     Active Substance: DEXLANSOPRAZOLE
     Indication: Peptic ulcer
     Route: 065
     Dates: start: 2013, end: 2016
  21. DEXILANT [Suspect]
     Active Substance: DEXLANSOPRAZOLE
     Indication: Prophylaxis against gastrointestinal ulcer
     Route: 065
     Dates: start: 2013, end: 2016
  22. DEXILANT [Suspect]
     Active Substance: DEXLANSOPRAZOLE
     Indication: Gastrooesophageal reflux disease
     Dosage: 60.0MG UNKNOWN
     Route: 048
     Dates: start: 20130903
  23. DEXILANT [Suspect]
     Active Substance: DEXLANSOPRAZOLE
     Indication: Peptic ulcer
     Dosage: 60.0MG UNKNOWN
     Route: 048
     Dates: start: 20130903
  24. DEXILANT [Suspect]
     Active Substance: DEXLANSOPRAZOLE
     Indication: Prophylaxis against gastrointestinal ulcer
     Dosage: 60.0MG UNKNOWN
     Route: 048
     Dates: start: 20130903
  25. PROTONIX [Suspect]
     Active Substance: PANTOPRAZOLE SODIUM
     Route: 065
  26. VALIUM [Concomitant]
     Active Substance: DIAZEPAM
     Dosage: 5.0MG AS REQUIRED
     Dates: start: 20120329
  27. COUMADIN [Concomitant]
     Active Substance: WARFARIN SODIUM
     Dates: start: 20120329
  28. ARANESP [Concomitant]
     Active Substance: DARBEPOETIN ALFA
     Dates: start: 20120329
  29. DILAUDID [Concomitant]
     Active Substance: HYDROMORPHONE HYDROCHLORIDE
     Indication: Pain
     Dosage: THREE TO FOUR PILLS PER DAY
     Dates: start: 20120329
  30. PHENERGAN [Concomitant]
     Active Substance: PROMETHAZINE HYDROCHLORIDE
     Dosage: 25.0MG UNKNOWN
     Dates: start: 20120329
  31. URECHOLINE [Concomitant]
     Active Substance: BETHANECHOL CHLORIDE
     Dosage: 1 TO 2 DAILY
     Dates: start: 20120329
  32. NORVASC [Concomitant]
     Active Substance: AMLODIPINE BESYLATE
     Indication: Blood pressure measurement
     Dates: start: 20120329
  33. ALLEGRA-D [Concomitant]
     Active Substance: FEXOFENADINE HYDROCHLORIDE\PSEUDOEPHEDRINE HYDROCHLORIDE
     Dosage: EVERY 12 HOURS AS NEEDED
     Dates: start: 20120329
  34. VOLTAREN [Concomitant]
     Active Substance: DICLOFENAC SODIUM
     Dates: start: 20120329
  35. ZOVIRAX [Concomitant]
     Active Substance: ACYCLOVIR
     Dosage: 50.0MG AS REQUIRED
     Dates: start: 20120329
  36. FOLIC ACID [Concomitant]
     Active Substance: FOLIC ACID
     Indication: Bone marrow disorder
     Dates: start: 20060314
  37. EFFEXOR XR [Concomitant]
     Active Substance: VENLAFAXINE HYDROCHLORIDE
     Dates: start: 20060228
  38. AMITRIPTYLINE [Concomitant]
     Active Substance: AMITRIPTYLINE
     Indication: Depression
     Route: 048
     Dates: start: 20120329
  39. COZAAR/LOSARTAN [Concomitant]
     Indication: Blood pressure measurement
     Dosage: 50.0MG UNKNOWN
     Route: 065
     Dates: start: 20060306
  40. HYDROXYUREA/DROXIA [Concomitant]
     Indication: Sickle cell disease
     Dosage: 500.0MG UNKNOWN
     Dates: start: 20060306
  41. PENICILLIN V POTASSIUM [Concomitant]
     Active Substance: PENICILLIN V POTASSIUM
     Dosage: 500.0MG UNKNOWN
     Dates: start: 20100615
  42. NAPROXEN SODIUM [Concomitant]
     Active Substance: NAPROXEN SODIUM
     Dosage: 550.0MG UNKNOWN
     Dates: start: 20131001
  43. SUCRALFATE [Concomitant]
     Active Substance: SUCRALFATE
     Dosage: 1.0G UNKNOWN
     Dates: start: 20150514
  44. ALKA-SELTZER [Concomitant]
     Active Substance: ANHYDROUS CITRIC ACID\ASPIRIN\SODIUM BICARBONATE
     Route: 065
     Dates: start: 1999, end: 2004
  45. PEPTO-BISMOL [Concomitant]
     Active Substance: BISMUTH SUBSALICYLATE
     Route: 005
     Dates: start: 2001
  46. HYDROXYZINE [Concomitant]
     Active Substance: HYDROXYZINE HYDROCHLORIDE
     Indication: Sickle cell disease
     Route: 005
     Dates: start: 2001
  47. PROCRIT [Concomitant]
     Active Substance: ERYTHROPOIETIN
  48. ELIQUIS [Concomitant]
     Active Substance: APIXABAN
     Route: 065
  49. DROXIA [Concomitant]
     Active Substance: HYDROXYUREA
     Route: 065
  50. HYDRALAZINE [Concomitant]
     Active Substance: HYDRALAZINE HYDROCHLORIDE
     Route: 065
  51. METHADONE [Concomitant]
     Active Substance: METHADONE HYDROCHLORIDE
     Route: 065
  52. ZOFRAN [Concomitant]
     Active Substance: ONDANSETRON HYDROCHLORIDE
     Route: 065
  53. TRAZODONE [Concomitant]
     Active Substance: TRAZODONE HYDROCHLORIDE
  54. ACYCLOVIR [Concomitant]
     Active Substance: ACYCLOVIR
  55. VENLAFAXINE HYDROCHLORIDE [Concomitant]
     Active Substance: VENLAFAXINE HYDROCHLORIDE
  56. AMOXICILLIN [Concomitant]
     Active Substance: AMOXICILLIN
  57. ACETAMINOPHEN\HYDROCODONE BITARTRATE [Concomitant]
     Active Substance: ACETAMINOPHEN\HYDROCODONE BITARTRATE
  58. PROMETHAZINE [Concomitant]
     Active Substance: PROMETHAZINE HYDROCHLORIDE
  59. VENLAFAXINE [Concomitant]
     Active Substance: VENLAFAXINE HYDROCHLORIDE
  60. HYDROMORPHONE [Concomitant]
     Active Substance: HYDROMORPHONE
  61. BETHANECHOL [Concomitant]
     Active Substance: BETHANECHOL

REACTIONS (3)
  - Chronic kidney disease [Not Recovered/Not Resolved]
  - Acute kidney injury [Not Recovered/Not Resolved]
  - Chronic kidney disease-mineral and bone disorder [Unknown]

NARRATIVE: CASE EVENT DATE: 20100101
